FAERS Safety Report 9655888 (Version 2)
Quarter: 2013Q4

REPORT INFORMATION
  Report Type: Spontaneous
  Country: US (occurrence: US)
  Receive Date: 20131030
  Receipt Date: 20131106
  Transmission Date: 20140711
  Serious: Yes (Death)
  Sender: FDA-Public Use
  Company Number: US-AMGEN-USASP2013075227

PATIENT
  Age: 93 Year
  Sex: Female
  Weight: 54.42 kg

DRUGS (1)
  1. PROLIA [Suspect]
     Indication: OSTEOPOROSIS POSTMENOPAUSAL
     Dosage: UNK UNK, Q6MO
     Route: 058

REACTIONS (4)
  - Failure to thrive [Fatal]
  - Cerebrovascular accident [Fatal]
  - General physical health deterioration [Fatal]
  - Dysphagia [Fatal]
